FAERS Safety Report 6926396-4 (Version None)
Quarter: 2010Q3

REPORT INFORMATION
  Report Type: 
  Country: None (occurrence: None)
  Receive Date: 20100816
  Receipt Date: 20100802
  Transmission Date: 20110219
  Serious: Yes (Hospitalization)
  Sender: FDA-Public Use
  Company Number: CO-GENENTECH-305031

PATIENT
  Sex: Female

DRUGS (1)
  1. XOLAIR [Suspect]
     Indication: ASTHMA
     Dosage: 300 MG, Q15D
     Route: 058
     Dates: start: 20100712, end: 20100802

REACTIONS (1)
  - ASTHMA [None]
